FAERS Safety Report 5557361-X (Version None)
Quarter: 2007Q4

REPORT INFORMATION
  Report Type: 
  Country: None (occurrence: None)
  Receive Date: 20071211
  Receipt Date: 20071126
  Transmission Date: 20080405
  Serious: Yes (Hospitalization)
  Sender: FDA-Public Use
  Company Number: S07-SWE-06190-01

PATIENT
  Age: 36 Year
  Sex: Male

DRUGS (5)
  1. ESCITALOPRAM [Suspect]
     Dosage: 10 MG QD PO
     Route: 048
     Dates: start: 20061001
  2. FRAGMIN [Suspect]
     Indication: PULMONARY EMBOLISM
     Dosage: 2500 ML QD SC
     Route: 058
     Dates: start: 20070416, end: 20070909
  3. WARFARIN SODIUM [Suspect]
     Indication: PULMONARY EMBOLISM
  4. SERETIDE DISKUS [Concomitant]
  5. VENTOLIN [Concomitant]

REACTIONS (3)
  - CEREBRAL HAEMORRHAGE [None]
  - GRAND MAL CONVULSION [None]
  - HYPERTENSION [None]
